FAERS Safety Report 9703034 (Version 1)
Quarter: 2013Q4

REPORT INFORMATION
  Report Type: Report from Study
  Country: US (occurrence: US)
  Receive Date: 20131122
  Receipt Date: 20131122
  Transmission Date: 20140711
  Serious: Yes (Other)
  Sender: FDA-Public Use
  Company Number: US-ROCHE-1307523

PATIENT
  Sex: Female

DRUGS (7)
  1. XOLAIR [Suspect]
     Indication: ASTHMA
     Dosage: STARTED 2-3 YRS AGO
     Route: 065
  2. CLARINEX-D [Concomitant]
  3. DULERA [Concomitant]
     Dosage: 200/5 MCG
     Route: 048
  4. ALBUTEROL [Concomitant]
     Dosage: 1-2 PRN
     Route: 048
  5. OMEPRAZOLE [Concomitant]
     Route: 048
  6. PREDNISONE [Concomitant]
     Route: 065
  7. DILTIAZEM [Concomitant]

REACTIONS (12)
  - Anaphylactic reaction [Unknown]
  - Asthma [Unknown]
  - Conjunctivitis [Unknown]
  - Eczema [Unknown]
  - Obesity [Unknown]
  - Erythema nodosum [Unknown]
  - Iron deficiency anaemia [Unknown]
  - Sinus tachycardia [Unknown]
  - Seasonal allergy [Unknown]
  - Rhinitis perennial [Unknown]
  - Gastrooesophageal reflux disease [Unknown]
  - Dermatitis atopic [Unknown]
